FAERS Safety Report 8634511 (Version 3)
Quarter: 2013Q4

REPORT INFORMATION
  Report Type: Spontaneous
  Country: GB (occurrence: GB)
  Receive Date: 20120626
  Receipt Date: 20131004
  Transmission Date: 20140711
  Serious: Yes (Hospitalization, Other)
  Sender: FDA-Public Use
  Company Number: PHFR2012GB003555

PATIENT
  Age: 57 Year
  Sex: Female

DRUGS (3)
  1. CLOZARIL [Suspect]
     Indication: SCHIZOPHRENIA, PARANOID TYPE
     Dosage: 175 MG, UNK
     Route: 048
     Dates: start: 20030910
  2. TAMOXIFEN [Concomitant]
     Indication: BREAST CANCER
     Dosage: UNK UKN, UNK
     Route: 048
  3. SIMVASTATIN [Concomitant]
     Indication: BLOOD CHOLESTEROL INCREASED
     Dosage: UNK UKN, UNK
     Route: 048

REACTIONS (8)
  - Meningitis bacterial [Unknown]
  - Neoplasm malignant [Unknown]
  - Malaise [Unknown]
  - Meningitis [Recovered/Resolved]
  - Musculoskeletal stiffness [Unknown]
  - Antipsychotic drug level increased [Unknown]
  - Rash generalised [Recovered/Resolved]
  - Breast cancer [Recovered/Resolved]
